FAERS Safety Report 6751825-9 (Version None)
Quarter: 2010Q2

REPORT INFORMATION
  Report Type: 
  Country: None (occurrence: None)
  Receive Date: 20100602
  Receipt Date: 20100602
  Transmission Date: 20101027
  Serious: Yes (Life-Threatening, Hospitalization)
  Sender: FDA-Public Use
  Company Number: None

PATIENT
  Age: 3 Year
  Sex: Male
  Weight: 13.6079 kg

DRUGS (1)
  1. CHILDREN'S MOTRIN [Suspect]
     Indication: UPPER RESPIRATORY TRACT INFECTION
     Dosage: 5ML BID ORAL 047
     Route: 048
     Dates: start: 20100220, end: 20100222

REACTIONS (3)
  - DUODENAL PERFORATION [None]
  - DUODENITIS [None]
  - ILEUS [None]
